FAERS Safety Report 6309641-8 (Version None)
Quarter: 2009Q3

REPORT INFORMATION
  Report Type: 
  Country: None (occurrence: None)
  Receive Date: 20090814
  Receipt Date: 20090810
  Transmission Date: 20100115
  Serious: No
  Sender: FDA-Public Use
  Company Number: US-JNJFOC-20090702894

PATIENT
  Sex: Female
  Weight: 45.36 kg

DRUGS (3)
  1. DURAGESIC-100 [Suspect]
     Route: 062
  2. DURAGESIC-100 [Suspect]
     Indication: NEURALGIA
     Route: 062
  3. A + D OINTMENT [Concomitant]
     Indication: ACNE
     Route: 061

REACTIONS (6)
  - APPLICATION SITE ERYTHEMA [None]
  - ARTHROPOD BITE [None]
  - DEVICE LEAKAGE [None]
  - INAPPROPRIATE SCHEDULE OF DRUG ADMINISTRATION [None]
  - PAIN [None]
  - PRODUCT QUALITY ISSUE [None]
